FAERS Safety Report 4531500-1 (Version None)
Quarter: 2004Q4

REPORT INFORMATION
  Report Type: 
  Country: None (occurrence: None)
  Receive Date: 20041220
  Receipt Date: 20041207
  Transmission Date: 20050328
  Serious: Yes (Hospitalization, Other)
  Sender: FDA-Public Use
  Company Number: IT-JNJFOC-20041202121

PATIENT
  Age: 49 Year
  Sex: Male

DRUGS (3)
  1. REMICADE [Suspect]
     Indication: RHEUMATOID ARTHRITIS
     Route: 042
  2. METHOTREXATE [Suspect]
     Indication: RHEUMATOID ARTHRITIS
     Route: 049
  3. ARCOXIA [Concomitant]
     Indication: RHEUMATOID ARTHRITIS
     Route: 049

REACTIONS (3)
  - ANAL FISTULA [None]
  - DRUG INTERACTION [None]
  - PERIANAL ABSCESS [None]
